FAERS Safety Report 8374321-4 (Version None)
Quarter: 2012Q2

REPORT INFORMATION
  Report Type: 
  Country: None (occurrence: None)
  Receive Date: 20120521
  Receipt Date: 20120511
  Transmission Date: 20120825
  Serious: Yes (Hospitalization)
  Sender: FDA-Public Use
  Company Number: JP-VERTEX PHARMACEUTICALS INC.-AE-2012-004429

PATIENT
  Age: 66 Year
  Sex: Female

DRUGS (8)
  1. RIBAVIRIN [Concomitant]
     Route: 048
     Dates: start: 20120207, end: 20120305
  2. CEFMATAZOLE SODIUM [Concomitant]
     Dates: start: 20120330, end: 20120405
  3. TELAVIC (TELAPREVIR) [Suspect]
     Route: 048
     Dates: start: 20120427
  4. TELAVIC (TELAPREVIR) [Suspect]
     Indication: HEPATITIS C
     Route: 048
     Dates: start: 20120207, end: 20120220
  5. RIBAVIRIN [Concomitant]
     Route: 048
     Dates: start: 20120306
  6. PEGINTERFERON ALFA-2A [Concomitant]
     Route: 051
     Dates: start: 20120207
  7. TELAVIC (TELAPREVIR) [Suspect]
     Route: 048
     Dates: start: 20120306
  8. TELAVIC (TELAPREVIR) [Suspect]
     Route: 048
     Dates: start: 20120221, end: 20120305

REACTIONS (2)
  - ANAEMIA [None]
  - CHOLECYSTITIS ACUTE [None]
